FAERS Safety Report 22065731 (Version 1)
Quarter: 2023Q1

REPORT INFORMATION
  Report Type: Spontaneous
  Country: CA (occurrence: CA)
  Receive Date: 20230306
  Receipt Date: 20230306
  Transmission Date: 20230418
  Serious: Yes (Other)
  Sender: FDA-Public Use
  Company Number: CA-002147023-NVSC2023CA045741

PATIENT
  Age: 51 Year
  Sex: Male

DRUGS (1)
  1. METHOTREXATE [Suspect]
     Active Substance: METHOTREXATE
     Indication: Rheumatoid arthritis
     Dosage: 25 MG, QW
     Route: 058

REACTIONS (6)
  - Condition aggravated [Unknown]
  - Joint effusion [Unknown]
  - Rheumatoid arthritis [Unknown]
  - Product dose omission in error [Unknown]
  - Off label use [Unknown]
  - Drug ineffective [Unknown]
